FAERS Safety Report 7207146-3 (Version None)
Quarter: 2011Q1

REPORT INFORMATION
  Report Type: 
  Country: None (occurrence: None)
  Receive Date: 20110103
  Receipt Date: 20101217
  Transmission Date: 20110831
  Serious: Yes (Death)
  Sender: FDA-Public Use
  Company Number: JP-ABBOTT-11P-087-0694562-00

PATIENT
  Age: 70 Year
  Sex: Male

DRUGS (13)
  1. CHLORMADINONE ACETATE TAB [Concomitant]
     Indication: PROSTATE CANCER STAGE IV
     Route: 048
     Dates: start: 20090109, end: 20090206
  2. OXYCONTIN [Concomitant]
     Indication: CANCER PAIN
     Route: 048
     Dates: start: 20081024
  3. DUROTEP MT PATCH [Concomitant]
     Indication: CANCER PAIN
     Dosage: 4.2 MG 1 D
     Route: 062
  4. ASPIRIN [Concomitant]
     Indication: THROMBOSIS PROPHYLAXIS
     Route: 048
     Dates: start: 20090311, end: 20090512
  5. BICALUTAMIDE [Concomitant]
     Indication: PROSTATE CANCER STAGE IV
     Route: 048
     Dates: end: 20080327
  6. PREDONINE [Concomitant]
     Indication: PROSTATE CANCER STAGE IV
     Route: 048
     Dates: start: 20090512, end: 20090519
  7. MAGNESIUM OXIDE [Concomitant]
     Indication: CONSTIPATION
     Route: 048
     Dates: start: 20090109, end: 20090512
  8. ETHINYL ESTRADIOL [Concomitant]
     Indication: PROSTATE CANCER STAGE IV
     Route: 048
     Dates: start: 20090306, end: 20090512
  9. FLUTAMIDE [Concomitant]
     Indication: PROSTATE CANCER STAGE IV
     Route: 048
     Dates: start: 20080523, end: 20080912
  10. TAMSULOSIN HCL [Concomitant]
     Indication: DYSURIA
     Route: 048
     Dates: end: 20080523
  11. OMEPRAL [Concomitant]
     Indication: GASTRIC ULCER
     Route: 048
     Dates: start: 20080929, end: 20090515
  12. LEUPROLIDE ACETATE [Suspect]
     Indication: PROSTATE CANCER STAGE IV
     Route: 058
     Dates: start: 20070702, end: 20090306
  13. VOLTAREN [Concomitant]
     Indication: CANCER PAIN
     Route: 054
     Dates: start: 20080929, end: 20081212

REACTIONS (1)
  - PROSTATE CANCER STAGE IV [None]
